FAERS Safety Report 10283929 (Version 1)
Quarter: 2014Q3

REPORT INFORMATION
  Report Type: Spontaneous
  Country: FR (occurrence: FR)
  Receive Date: 20140708
  Receipt Date: 20140708
  Transmission Date: 20150326
  Serious: Yes (Life-Threatening)
  Sender: FDA-Public Use
  Company Number: FR-ASTRAZENECA-2014SE48435

PATIENT
  Age: 28888 Day
  Sex: Male

DRUGS (4)
  1. LANTUS [Concomitant]
     Active Substance: INSULIN GLARGINE
  2. NOVORAPID [Concomitant]
     Active Substance: INSULIN ASPART
  3. NAROPEINE [Suspect]
     Active Substance: ROPIVACAINE HYDROCHLORIDE
     Indication: LOCAL ANAESTHESIA
     Route: 053
     Dates: start: 20140605, end: 20140605
  4. NAROPEINE [Suspect]
     Active Substance: ROPIVACAINE HYDROCHLORIDE
     Indication: LOCAL ANAESTHESIA
     Route: 053
     Dates: start: 20140605, end: 20140605

REACTIONS (1)
  - Status epilepticus [Recovered/Resolved]

NARRATIVE: CASE EVENT DATE: 20140605
